FAERS Safety Report 10219800 (Version 2)
Quarter: 2014Q2

REPORT INFORMATION
  Report Type: Report from Study
  Country: DE (occurrence: DE)
  Receive Date: 20140605
  Receipt Date: 20140605
  Transmission Date: 20141212
  Serious: Yes (Hospitalization, Other)
  Sender: FDA-Public Use
  Company Number: DE-BAYER-2013-140174

PATIENT
  Age: 75 Year
  Sex: Female

DRUGS (1)
  1. BETAFERON [Suspect]
     Indication: MULTIPLE SCLEROSIS
     Dosage: 250 ?G, QOD
     Route: 058
     Dates: start: 19970101

REACTIONS (4)
  - Blood pressure systolic increased [Recovered/Resolved]
  - Cerebrovascular accident [Recovering/Resolving]
  - Blood pressure increased [Not Recovered/Not Resolved]
  - Nosocomial infection [Recovered/Resolved]
